FAERS Safety Report 6572208-0 (Version None)
Quarter: 2010Q1

REPORT INFORMATION
  Report Type: 
  Country: None (occurrence: None)
  Receive Date: 20100205
  Receipt Date: 20100125
  Transmission Date: 20100710
  Serious: Yes (Disabling)
  Sender: FDA-Public Use
  Company Number: US-WATSON-2010-00908

PATIENT
  Age: 6 Year
  Sex: Male

DRUGS (7)
  1. ETOPOSIDE [Suspect]
     Indication: SARCOMA
     Dosage: UNK
  2. VINCRISTINE [Suspect]
     Indication: SARCOMA
     Dosage: UNK
  3. ACTINOMYCIN D [Suspect]
     Indication: SARCOMA
     Dosage: UNK
  4. CYCLOPHOSPHAMIDE [Suspect]
     Indication: SARCOMA
     Dosage: UNK
  5. DOXORUBICIN HCL [Suspect]
     Indication: SARCOMA
     Dosage: UNK
  6. CISPLATIN [Suspect]
     Indication: SARCOMA
     Dosage: UNK
  7. DTIC                               /00372801/ [Suspect]
     Indication: SARCOMA
     Dosage: UNK

REACTIONS (1)
  - MYELITIS TRANSVERSE [None]
